FAERS Safety Report 9135392 (Version 1)
Quarter: 2013Q1

REPORT INFORMATION
  Report Type: Spontaneous
  Country: US (occurrence: US)
  Receive Date: 20130304
  Receipt Date: 20130304
  Transmission Date: 20140127
  Serious: No
  Sender: FDA-Public Use
  Company Number: US-ENDO PHARMACEUTICALS INC.-ENDC20110188

PATIENT
  Age: 60 Year
  Sex: Female

DRUGS (1)
  1. ENDOCET [Suspect]
     Indication: PAIN
     Dosage: 120MG/3900MG
     Route: 048
     Dates: start: 20110603

REACTIONS (5)
  - Back pain [Recovering/Resolving]
  - Erythema [Recovered/Resolved]
  - Swelling [Recovered/Resolved]
  - Somnolence [Unknown]
  - Local swelling [Unknown]
